FAERS Safety Report 8583628-7 (Version None)
Quarter: 2012Q3

REPORT INFORMATION
  Report Type: 
  Country: None (occurrence: None)
  Receive Date: 20120809
  Receipt Date: 20120706
  Transmission Date: 20120928
  Serious: Yes (Hospitalization, Other)
  Sender: FDA-Public Use
  Company Number: GR-009507513-1206USA04481

PATIENT

DRUGS (4)
  1. DROSPIRENONE AND ETHINYL ESTRADIOL [Concomitant]
  2. MAXALT [Suspect]
     Dosage: 10 MG, ONCE
     Route: 048
     Dates: start: 20120621
  3. ACETAMINOPHEN [Suspect]
     Dates: start: 20120621
  4. MEFENAMIC ACID [Suspect]
     Dates: start: 20120621

REACTIONS (3)
  - DRUG INEFFECTIVE [None]
  - BLOOD CREATINE PHOSPHOKINASE INCREASED [None]
  - VOMITING [None]
